FAERS Safety Report 13347079 (Version 2)
Quarter: 2017Q2

REPORT INFORMATION
  Report Type: Spontaneous
  Country: US (occurrence: US)
  Receive Date: 20170317
  Receipt Date: 20170609
  Transmission Date: 20170830
  Serious: Yes (Hospitalization, Other)
  Sender: FDA-Public Use
  Company Number: US-PFIZER INC-2017117792

PATIENT
  Age: 59 Year
  Sex: Male
  Weight: 79 kg

DRUGS (3)
  1. HUMALOG [Concomitant]
     Active Substance: INSULIN LISPRO
     Indication: DIABETES MELLITUS
     Dosage: 202 UNITS PEN
     Dates: start: 201702
  2. VIAGRA [Suspect]
     Active Substance: SILDENAFIL CITRATE
     Indication: ERECTILE DYSFUNCTION
     Dosage: 100 MG, 1X/DAY
     Route: 048
     Dates: start: 2016
  3. VIAGRA [Suspect]
     Active Substance: SILDENAFIL CITRATE
     Dosage: 100 MG, 2X/WEEK
     Dates: start: 2016

REACTIONS (2)
  - Prostate cancer [Not Recovered/Not Resolved]
  - Urinary incontinence [Not Recovered/Not Resolved]
